FAERS Safety Report 5248220-0 (Version None)
Quarter: 2007Q1

REPORT INFORMATION
  Report Type: 
  Country: None (occurrence: None)
  Receive Date: 20070227
  Receipt Date: 20060803
  Transmission Date: 20070707
  Serious: No
  Sender: FDA-Public Use
  Company Number: US-BRISTOL-MYERS SQUIBB COMPANY-13465042

PATIENT
  Age: 67 Year
  Sex: Female
  Weight: 82 kg

DRUGS (3)
  1. GLUCOPHAGE [Suspect]
     Indication: DIABETES MELLITUS NON-INSULIN-DEPENDENT
     Route: 048
     Dates: start: 20030101
  2. BYETTA [Suspect]
     Indication: DIABETES MELLITUS NON-INSULIN-DEPENDENT
     Route: 058
     Dates: start: 20060401
  3. GLIPIZIDE [Concomitant]
     Dates: start: 20050901

REACTIONS (6)
  - BLOOD GLUCOSE DECREASED [None]
  - CHILLS [None]
  - DIARRHOEA [None]
  - FEELING COLD [None]
  - LETHARGY [None]
  - VOMITING [None]
